FAERS Safety Report 5806002-2 (Version None)
Quarter: 2008Q3

REPORT INFORMATION
  Report Type: 
  Country: None (occurrence: None)
  Receive Date: 20080710
  Receipt Date: 20080707
  Transmission Date: 20090109
  Serious: Yes (Hospitalization, Disabling)
  Sender: FDA-Public Use
  Company Number: B0528066A

PATIENT
  Age: 75 Year
  Sex: Female
  Weight: 75 kg

DRUGS (8)
  1. ROSIGLITAZONE [Suspect]
     Indication: DIABETES MELLITUS
     Route: 048
     Dates: start: 20030420, end: 20080613
  2. LEVOTHYROXINE SODIUM [Concomitant]
     Dosage: 128MCG PER DAY
  3. PERINDOPRIL ERBUMINE [Concomitant]
     Dosage: 8MG PER DAY
     Dates: end: 20080607
  4. AMITRIPTYLINE HCL [Concomitant]
     Dosage: 10MG PER DAY
  5. ASPIRIN [Concomitant]
     Dosage: 75MG PER DAY
  6. BENDROFLUMETHIAZIDE [Concomitant]
     Dosage: 2.5MG PER DAY
  7. CO-BENELDOPA [Concomitant]
     Dosage: 10MG PER DAY
  8. CINNARIZINE [Concomitant]
     Dosage: 30MG PER DAY

REACTIONS (1)
  - SPINAL FRACTURE [None]
